FAERS Safety Report 7004767-8 (Version None)
Quarter: 2010Q3

REPORT INFORMATION
  Report Type: 
  Country: None (occurrence: None)
  Receive Date: 20100921
  Receipt Date: 20100915
  Transmission Date: 20110219
  Serious: Yes (Hospitalization)
  Sender: FDA-Public Use
  Company Number: US-SANOFI-AVENTIS-2010SA043805

PATIENT
  Age: 62 Year
  Sex: Male
  Weight: 103 kg

DRUGS (7)
  1. DOCETAXEL [Suspect]
     Indication: PROSTATE CANCER
     Route: 041
     Dates: start: 20100111, end: 20100111
  2. DOCETAXEL [Suspect]
     Route: 041
     Dates: start: 20100614, end: 20100614
  3. BLINDED THERAPY [Suspect]
     Indication: PROSTATE CANCER
     Route: 048
     Dates: start: 20100111, end: 20100618
  4. BLINDED THERAPY [Suspect]
     Route: 048
     Dates: start: 20100701
  5. PREDNISONE [Suspect]
     Indication: PROSTATE CANCER
     Route: 048
     Dates: start: 20100111, end: 20100617
  6. ASPIRIN [Suspect]
  7. SYNTHROID [Concomitant]

REACTIONS (3)
  - ABDOMINAL INFECTION [None]
  - GASTRIC ULCER [None]
  - WOUND INFECTION STAPHYLOCOCCAL [None]
